FAERS Safety Report 7916993-1 (Version None)
Quarter: 2011Q4

REPORT INFORMATION
  Report Type: 
  Country: None (occurrence: None)
  Receive Date: 20111116
  Receipt Date: 20111116
  Transmission Date: 20120403
  Serious: Yes (Other)
  Sender: FDA-Public Use
  Company Number: None

PATIENT
  Age: 49 Year
  Sex: Female
  Weight: 90.718 kg

DRUGS (2)
  1. CAPZASIN HP [Suspect]
     Indication: MUSCLE STRAIN
     Dosage: APPLY TO AFFECTED AREA
     Route: 061
     Dates: start: 20111115, end: 20111115
  2. CAPZASIN HP [Suspect]
     Indication: SCIATICA
     Dosage: APPLY TO AFFECTED AREA
     Route: 061
     Dates: start: 20111115, end: 20111115

REACTIONS (3)
  - BURNING SENSATION [None]
  - ERYTHEMA [None]
  - FEELING HOT [None]
